FAERS Safety Report 19145624 (Version 1)
Quarter: 2021Q2

REPORT INFORMATION
  Report Type: Spontaneous
  Country: US (occurrence: US)
  Receive Date: 20210416
  Receipt Date: 20210416
  Transmission Date: 20210717
  Serious: No
  Sender: FDA-Public Use
  Company Number: US-ASTRAZENECA-2021A030192

PATIENT
  Age: 23147 Day
  Sex: Female
  Weight: 100.7 kg

DRUGS (1)
  1. PULMICORT FLEXHALER [Suspect]
     Active Substance: BUDESONIDE
     Indication: COVID-19
     Dosage: 1 PUFF ONCE A DAY, 120 DOSES
     Route: 055
     Dates: start: 20210127

REACTIONS (5)
  - Device malfunction [Unknown]
  - Pulmonary congestion [Unknown]
  - Device issue [Unknown]
  - Product use in unapproved indication [Unknown]
  - Poor quality device used [Unknown]

NARRATIVE: CASE EVENT DATE: 20210127
